FAERS Safety Report 7396594-7 (Version None)
Quarter: 2011Q2

REPORT INFORMATION
  Report Type: 
  Country: None (occurrence: None)
  Receive Date: 20110406
  Receipt Date: 20110329
  Transmission Date: 20111010
  Serious: Yes (Other)
  Sender: FDA-Public Use
  Company Number: PHHY2011US01332

PATIENT
  Sex: Female

DRUGS (5)
  1. FANAPT [Suspect]
     Indication: BIPOLAR DISORDER
     Dosage: 6 MG, BID
     Route: 048
     Dates: start: 20100713, end: 20101213
  2. ABMIENOA [Concomitant]
  3. LAMICTAL [Concomitant]
     Indication: BIPOLAR DISORDER
     Dosage: 200 MG, QD (HS: NIGHT DOSE)
     Route: 048
     Dates: start: 20100412
  4. COMBULTOR [Concomitant]
     Indication: BIPOLAR DISORDER
     Dosage: 6 MG, QD
     Route: 048
     Dates: start: 20100412
  5. XANAX [Concomitant]
     Indication: ANXIETY
     Dosage: 1 MG, TID
     Route: 048
     Dates: start: 20100412

REACTIONS (2)
  - OROPHARYNGEAL BLISTERING [None]
  - TONGUE BLISTERING [None]
